FAERS Safety Report 26021033 (Version 1)
Quarter: 2025Q4

REPORT INFORMATION
  Report Type: Spontaneous
  Country: CH (occurrence: CH)
  Receive Date: 20251110
  Receipt Date: 20251110
  Transmission Date: 20260117
  Serious: Yes (Life-Threatening, Hospitalization, Disabling, Other)
  Sender: MERCK SHARP & DOHME LLC
  Company Number: None

PATIENT
  Age: 54 Year
  Sex: Male
  Weight: 55 kg

DRUGS (1)
  1. KEYTRUDA [Suspect]
     Active Substance: PEMBROLIZUMAB
     Indication: Oropharyngeal squamous cell carcinoma
     Dosage: TIME INTERVAL: CYCLICAL: A TOTAL OF 2 CYCLES
     Route: 042
     Dates: start: 20250717, end: 20250808

REACTIONS (1)
  - Haemophagocytic lymphohistiocytosis [Recovering/Resolving]

NARRATIVE: CASE EVENT DATE: 20250829
